FAERS Safety Report 7982895-8 (Version None)
Quarter: 2011Q4

REPORT INFORMATION
  Report Type: 
  Country: None (occurrence: None)
  Receive Date: 20111215
  Receipt Date: 20111201
  Transmission Date: 20120403
  Serious: Yes (Hospitalization)
  Sender: FDA-Public Use
  Company Number: IE-MEDIMMUNE-MEDI-0014097

PATIENT
  Sex: Male

DRUGS (5)
  1. SYNAGIS [Suspect]
     Route: 030
     Dates: start: 20111003, end: 20111003
  2. ERGOCALCIFEROL [Concomitant]
  3. IRON [Concomitant]
  4. SYNAGIS [Suspect]
     Route: 030
     Dates: start: 20111201, end: 20111201
  5. DIURETICS [Concomitant]

REACTIONS (1)
  - LOWER RESPIRATORY TRACT INFECTION [None]
